FAERS Safety Report 4383652-4 (Version None)
Quarter: 2004Q2

REPORT INFORMATION
  Report Type: 
  Country: None (occurrence: None)
  Receive Date: 20040623
  Receipt Date: 20030925
  Transmission Date: 20050107
  Serious: Yes (Life-Threatening, Hospitalization)
  Sender: FDA-Public Use
  Company Number: 347203

PATIENT
  Age: 4 Year
  Sex: Male
  Weight: 13 kg

DRUGS (5)
  1. ARTIST [Suspect]
     Indication: CARDIAC FAILURE
     Route: 048
     Dates: start: 19990215
  2. LASIX [Concomitant]
     Route: 065
  3. CILAZAPRIL [Concomitant]
     Route: 065
  4. DIGOXIN [Concomitant]
     Route: 065
  5. ALDACTONE [Concomitant]
     Route: 065

REACTIONS (7)
  - ACIDOSIS [None]
  - CONVULSION [None]
  - HYPOGLYCAEMIA [None]
  - LOSS OF CONSCIOUSNESS [None]
  - NASOPHARYNGITIS [None]
  - NEUROLOGICAL SYMPTOM [None]
  - RESPIRATORY ARREST [None]
